FAERS Safety Report 18353631 (Version 1)
Quarter: 2020Q4

REPORT INFORMATION
  Report Type: Spontaneous
  Country: US (occurrence: US)
  Receive Date: 20201006
  Receipt Date: 20201006
  Transmission Date: 20210114
  Serious: No
  Sender: FDA-Public Use
  Company Number: US-ROCHE-2423490

PATIENT
  Sex: Female

DRUGS (2)
  1. ZELBORAF [Suspect]
     Active Substance: VEMURAFENIB
     Indication: VOCAL CORD PARALYSIS
  2. ZELBORAF [Suspect]
     Active Substance: VEMURAFENIB
     Indication: VOCAL CORD PARALYSIS
     Dosage: TAKE 4 TABLETS (960 MG) BY MOUTH
     Route: 048

REACTIONS (5)
  - Intentional product use issue [Unknown]
  - Rash [Unknown]
  - Rash [Not Recovered/Not Resolved]
  - Fatigue [Not Recovered/Not Resolved]
  - Off label use [Unknown]
